FAERS Safety Report 22277279 (Version 2)
Quarter: 2023Q2

REPORT INFORMATION
  Report Type: Spontaneous
  Country: US (occurrence: US)
  Receive Date: 20230503
  Receipt Date: 20230630
  Transmission Date: 20230721
  Serious: No
  Sender: FDA-Public Use
  Company Number: US-BRISTOL-MYERS SQUIBB COMPANY-2023-062621

PATIENT
  Age: 72 Year
  Sex: Female

DRUGS (2)
  1. REVLIMID [Suspect]
     Active Substance: LENALIDOMIDE
     Indication: Plasma cell myeloma
     Dosage: FREQ: OTHER
     Route: 048
     Dates: start: 202201
  2. REVLIMID [Suspect]
     Active Substance: LENALIDOMIDE
     Dosage: FREQ: OTHER
     Route: 048
     Dates: start: 202009

REACTIONS (5)
  - Norovirus infection [Unknown]
  - Lower respiratory tract infection [Unknown]
  - Rash [Unknown]
  - Paraesthesia [Unknown]
  - Taste disorder [Unknown]

NARRATIVE: CASE EVENT DATE: 20230501
